FAERS Safety Report 9372569 (Version 1)
Quarter: 2013Q2

REPORT INFORMATION
  Report Type: Spontaneous
  Country: US (occurrence: None)
  Receive Date: 20130605
  Receipt Date: 20130605
  Transmission Date: 20140414
  Serious: Yes (Disabling, Other)
  Sender: FDA-Public Use
  Company Number: 2013036312

PATIENT
  Sex: Male
  Weight: 118.39 kg

DRUGS (31)
  1. ZEMAIRA (ALPHA-1 PROTEINASE INHIBITOR (HUMAN)) [Suspect]
     Indication: ALPHA-1 ANTI-TRYPSIN DEFICIENCY
     Dosage: 60 MG/KG 1X/WEEK. 933 MG/VIAL; MAXIUM RATE=0.08 ML/KG/MIN (9.5 ML/MIN.) INTRAVENOUS (NOT OTHERWISE SPECIFIED)
     Route: 042
  2. ADVAIR (SERETIDE /01420901/) [Concomitant]
  3. ASPIRIN (ACETYLSALICYLIC ACID) [Concomitant]
  4. DIPHENHYDRAMINE (DIPHENHYDRAMINE) [Concomitant]
  5. EPIPEN (EPINEPHRINE) [Concomitant]
  6. LMX (LIDOCAINE) [Concomitant]
  7. DALIRESP (ALL OTHER THERAPEUTIC PRODUCTS) [Concomitant]
  8. HYDROCODONE ACETAMINOPHEN (PROET /01554201/) [Concomitant]
  9. AZITHROMYCIN (AZITHROMYCIN) [Concomitant]
  10. LEVOCETIRIZINE (LEVOCETIRIZINE) [Concomitant]
  11. VYTORIN (INEGY) [Concomitant]
  12. OXYGEN (OXYGEN) [Concomitant]
  13. ANDROGEL (TESTOSTERONE) [Concomitant]
  14. LOSARTAN HCTZ (LOSARTAN) [Concomitant]
  15. FUROSEMIDE (FUROSEMIDE) [Concomitant]
  16. FLONASE (FLUTICASONE PROPIONATE) [Concomitant]
  17. VENTOLIN (SALBUTAMOL) [Concomitant]
  18. ONE A DAY ESSENTIAL (VITAMINS) [Concomitant]
  19. FLUOXETINE (FLUOXETINE) [Concomitant]
  20. KOMBIGLYZE (ALL OTHER THERAPEUTIC PRODUCTS) [Concomitant]
  21. ROBITUSSION COUGH COLD CF (DORCOL) [Concomitant]
  22. KRILL OIL (ALL OTHER THEAPUETIC PRODUCTS) [Concomitant]
  23. COQ10 (UBIDECARENONE) [Concomitant]
  24. TUSSINOEX PENNKINETIC (TUSSIONEX PENNKINETIC) [Concomitant]
  25. DUETACT (ALL OTHER THERAPEUTIC PRODUCTS) [Concomitant]
  26. TRIPLIPIX (ALL OTHER THERAPEUTIC PRODUCTS) [Concomitant]
  27. HYLATOPIC EMOLLIENT FORAM (ALL OTHER THERAPEUTIC PRODUCTS) [Concomitant]
  28. OLUX E FOAM (ALL OTHER THERAPEUTIC PRODUCTS) [Concomitant]
  29. SINGULAIR [Concomitant]
  30. SPIRIVA (TIOTROPIUM BROMIDE) [Concomitant]
  31. SODIUM CHLORIDE [Concomitant]

REACTIONS (2)
  - Lung infection [None]
  - Upper respiratory tract infection [None]
